FAERS Safety Report 15994502 (Version 1)
Quarter: 2019Q1

REPORT INFORMATION
  Report Type: Spontaneous
  Country: US (occurrence: US)
  Receive Date: 20190222
  Receipt Date: 20190222
  Transmission Date: 20190418
  Serious: No
  Sender: FDA-Public Use
  Company Number: US-INSYS THERAPEUTICS, INC-INS201802-000060

PATIENT
  Sex: Female

DRUGS (18)
  1. ROBAXIN [Concomitant]
     Active Substance: METHOCARBAMOL
  2. OMEPRAZOLE. [Concomitant]
     Active Substance: OMEPRAZOLE
  3. VITAMIN D3 [Concomitant]
     Active Substance: CHOLECALCIFEROL
  4. MELATONIN [Concomitant]
     Active Substance: MELATONIN
  5. SUBSYS [Suspect]
     Active Substance: FENTANYL
     Indication: BREAKTHROUGH PAIN
     Route: 060
  6. CYMBAITA [Concomitant]
  7. LYRICA [Concomitant]
     Active Substance: PREGABALIN
  8. ZOFRAN [Concomitant]
     Active Substance: ONDANSETRON HYDROCHLORIDE
  9. HYSINGIA ER [Concomitant]
  10. SUCRALFATE. [Concomitant]
     Active Substance: SUCRALFATE
  11. LUNESTA [Concomitant]
     Active Substance: ESZOPICLONE
     Route: 048
  12. OMEPRAZOLE. [Concomitant]
     Active Substance: OMEPRAZOLE
  13. COENZYME Q10 [Concomitant]
     Active Substance: UBIDECARENONE
  14. MARINOL [Concomitant]
     Active Substance: DRONABINOL
  15. OXYCODONE [Concomitant]
     Active Substance: OXYCODONE
  16. CYCLOBANZAPRINE [Concomitant]
  17. VITAMIN B12 / FOLIC ACID [Concomitant]
  18. METOPROLOL SUCCINATE ER [Concomitant]
     Active Substance: METOPROLOL SUCCINATE
     Route: 048

REACTIONS (2)
  - Tongue discomfort [Unknown]
  - Somnolence [Unknown]
